FAERS Safety Report 17025822 (Version 1)
Quarter: 2019Q4

REPORT INFORMATION
  Report Type: Spontaneous
  Country: US (occurrence: US)
  Receive Date: 20191113
  Receipt Date: 20191113
  Transmission Date: 20200122
  Serious: No
  Sender: FDA-Public Use
  Company Number: US-PFIZER INC-2019487656

PATIENT
  Age: 58 Year
  Sex: Female
  Weight: 63.5 kg

DRUGS (1)
  1. CHANTIX [Suspect]
     Active Substance: VARENICLINE TARTRATE
     Indication: SMOKING CESSATION THERAPY
     Dosage: UNK (STARTER PACK AND THEN CONTINUING PACK)
     Dates: start: 2016

REACTIONS (3)
  - Bronchial disorder [Unknown]
  - Nervousness [Unknown]
  - Weight decreased [Unknown]

NARRATIVE: CASE EVENT DATE: 20191028
